APPROVED DRUG PRODUCT: CEFTAZIDIME
Active Ingredient: CEFTAZIDIME
Strength: 1GM/VIAL
Dosage Form/Route: INJECTABLE;INJECTION
Application: A065196 | Product #001
Applicant: WOCKHARDT LTD
Approved: Oct 15, 2008 | RLD: No | RS: No | Type: DISCN